FAERS Safety Report 4644142-4 (Version None)
Quarter: 2005Q2

REPORT INFORMATION
  Report Type: 
  Country: None (occurrence: None)
  Receive Date: 20050425
  Receipt Date: 20050329
  Transmission Date: 20051028
  Serious: Yes (Other)
  Sender: FDA-Public Use
  Company Number: ES-GLAXOSMITHKLINE-B0376835A

PATIENT
  Age: 33 Year
  Sex: Male
  Weight: 93 kg

DRUGS (1)
  1. ZYNTABAC [Suspect]
     Dosage: 300MG PER DAY
     Route: 048
     Dates: start: 20050127, end: 20050214

REACTIONS (2)
  - LARYNGEAL OEDEMA [None]
  - RASH [None]
